FAERS Safety Report 25777018 (Version 1)
Quarter: 2025Q3

REPORT INFORMATION
  Report Type: Spontaneous
  Country: US (occurrence: US)
  Receive Date: 20250909
  Receipt Date: 20250909
  Transmission Date: 20251020
  Serious: No
  Sender: DOMPE FARMACEUTICI
  Company Number: US-FARMAPROD-202409-3394

PATIENT
  Age: 69 Year
  Sex: Female

DRUGS (11)
  1. OXERVATE [Suspect]
     Active Substance: CENEGERMIN-BKBJ
     Indication: Neurotrophic keratopathy
     Route: 047
     Dates: start: 20240829
  2. TRIAMCINOLONE ACETONIDE [Concomitant]
     Active Substance: TRIAMCINOLONE ACETONIDE
  3. LATANOPROST [Concomitant]
     Active Substance: LATANOPROST
  4. BRINZOLAMIDE [Concomitant]
     Active Substance: BRINZOLAMIDE
  5. COMBIGAN [Concomitant]
     Active Substance: BRIMONIDINE TARTRATE\TIMOLOL MALEATE
  6. BACITRACIN [Concomitant]
     Active Substance: BACITRACIN
  7. FOSAMAX [Concomitant]
     Active Substance: ALENDRONATE SODIUM
  8. DIFLUPREDNATE [Concomitant]
     Active Substance: DIFLUPREDNATE
  9. OFLOXACIN [Concomitant]
     Active Substance: OFLOXACIN
  10. ATROPINE SULFATE [Concomitant]
     Active Substance: ATROPINE SULFATE
  11. ZITHROMAX [Concomitant]
     Active Substance: AZITHROMYCIN DIHYDRATE

REACTIONS (6)
  - Ecchymosis [Unknown]
  - Ocular hyperaemia [Unknown]
  - Eye pain [Unknown]
  - Eyelid oedema [Unknown]
  - Headache [Unknown]
  - Oropharyngeal pain [Unknown]

NARRATIVE: CASE EVENT DATE: 20240924
